FAERS Safety Report 9014708 (Version 1)
Quarter: 2013Q1

REPORT INFORMATION
  Report Type: Spontaneous
  Country: US (occurrence: US)
  Receive Date: 20130115
  Receipt Date: 20130115
  Transmission Date: 20140127
  Serious: Yes (Life-Threatening, Hospitalization)
  Sender: FDA-Public Use
  Company Number: US-009507513-1301USA003626

PATIENT
  Age: 13 Year
  Sex: Male

DRUGS (2)
  1. SINGULAIR [Suspect]
     Indication: ASTHMA
     Dosage: 5 MG, UNK
     Route: 048
  2. SINGULAIR [Suspect]
     Indication: MULTIPLE ALLERGIES

REACTIONS (6)
  - Suicide attempt [Unknown]
  - Overdose [Unknown]
  - Mood swings [Unknown]
  - Irritability [Unknown]
  - Insomnia [Unknown]
  - Aggression [Unknown]
